FAERS Safety Report 4547358-0 (Version None)
Quarter: 2005Q1

REPORT INFORMATION
  Report Type: 
  Country: None (occurrence: None)
  Receive Date: 20050107
  Receipt Date: 20050106
  Transmission Date: 20050727
  Serious: Yes (Death, Life-Threatening, Disabling)
  Sender: FDA-Public Use
  Company Number: PHEH2005US00576

PATIENT
  Sex: Female

DRUGS (2)
  1. ANALGESICS,OTHER [Concomitant]
  2. ZOMETA [Suspect]
     Dosage: 4 MG, UNK
     Dates: end: 20041214

REACTIONS (5)
  - CEREBROVASCULAR ACCIDENT [None]
  - COGNITIVE DISORDER [None]
  - DEATH [None]
  - HALLUCINATION [None]
  - UNRESPONSIVE TO PAIN STIMULI [None]
